FAERS Safety Report 10130827 (Version 1)
Quarter: 2014Q2

REPORT INFORMATION
  Report Type: Spontaneous
  Country: US (occurrence: None)
  Receive Date: 20140425
  Receipt Date: 20140425
  Transmission Date: 20141212
  Serious: Yes (Hospitalization)
  Sender: FDA-Public Use
  Company Number: None

PATIENT
  Age: 65 Year
  Sex: Male
  Weight: 63.9 kg

DRUGS (13)
  1. CETUXIMAB (ERBITUX) (714692) [Suspect]
     Dates: start: 20140414
  2. ALTACE [Concomitant]
  3. PLAVIX [Concomitant]
  4. ACETAMINOPHEN [Concomitant]
  5. AMITRIPTYLINE [Suspect]
  6. HYDROCODONE [Concomitant]
  7. LORAZEPAM [Concomitant]
  8. LUNESTA [Concomitant]
  9. METOPROLOL TARTRATE [Concomitant]
  10. OMEPRAZOLE [Concomitant]
  11. SIMVASTATIN [Concomitant]
  12. TEMAZEPAM [Concomitant]
  13. ZOLOFT [Concomitant]

REACTIONS (7)
  - Dehydration [None]
  - Confusional state [None]
  - Disorientation [None]
  - Blood calcium decreased [None]
  - Blood potassium decreased [None]
  - Blood magnesium decreased [None]
  - Electrolyte imbalance [None]
